FAERS Safety Report 16031278 (Version 6)
Quarter: 2020Q4

REPORT INFORMATION
  Report Type: Spontaneous
  Country: US (occurrence: US)
  Receive Date: 20190304
  Receipt Date: 20201106
  Transmission Date: 20210113
  Serious: Yes (Death, Hospitalization, Other)
  Sender: FDA-Public Use
  Company Number: US-PFIZER INC-2018531907

PATIENT
  Age: 74 Year
  Sex: Male
  Weight: 55.34 kg

DRUGS (2)
  1. REVATIO [Suspect]
     Active Substance: SILDENAFIL CITRATE
     Indication: CARDIAC DISORDER
     Dosage: 2 TABLETS, 40 MG, 3X/DAY
     Route: 048
  2. REVATIO [Suspect]
     Active Substance: SILDENAFIL CITRATE
     Dosage: 20 MG, 3X/DAY

REACTIONS (5)
  - Off label use [Unknown]
  - Device related infection [Recovered/Resolved]
  - Infection [Unknown]
  - Cardiac death [Fatal]
  - Product use issue [Unknown]

NARRATIVE: CASE EVENT DATE: 20201030
